FAERS Safety Report 10432485 (Version 2)
Quarter: 2015Q1

REPORT INFORMATION
  Report Type: Spontaneous
  Country: US (occurrence: None)
  Receive Date: 20140815
  Receipt Date: 20150129
  Transmission Date: 20150720
  Serious: No
  Sender: FDA-Public Use
  Company Number: A-US2014-100284

PATIENT
  Age: 56 Year
  Sex: Female

DRUGS (1)
  1. OPSUMIT [Suspect]
     Active Substance: MACITENTAN
     Indication: PULMONARY ARTERIAL HYPERTENSION
     Route: 048
     Dates: start: 20140507

REACTIONS (5)
  - Pain in extremity [None]
  - Arthralgia [None]
  - Varicose vein [None]
  - Paraesthesia [None]
  - Pruritus [None]
